FAERS Safety Report 23290399 (Version 2)
Quarter: 2024Q2

REPORT INFORMATION
  Report Type: Spontaneous
  Country: US (occurrence: US)
  Receive Date: 20231213
  Receipt Date: 20240402
  Transmission Date: 20240716
  Serious: Yes (Other)
  Sender: FDA-Public Use
  Company Number: US-TEVA-VS-3134826

PATIENT
  Age: 53 Year
  Sex: Male

DRUGS (4)
  1. DEXAMETHASONE [Suspect]
     Active Substance: DEXAMETHASONE
     Indication: Osteoarthritis
     Dosage: INJECTIONS IN EACH C4-5, C5-6 AND C6-7 FACET JOINTS
     Route: 008
  2. PREDNISONE [Suspect]
     Active Substance: PREDNISONE
     Indication: Swelling face
     Route: 065
  3. TRIAMCINOLONE [Suspect]
     Active Substance: TRIAMCINOLONE
     Indication: Osteoarthritis
     Dosage: INJECTIONS IN THE RIGHT C4-5, C6-C7, LEFT C4-5, C6 AND C7
     Route: 008
  4. TRIAMCINOLONE [Suspect]
     Active Substance: TRIAMCINOLONE
     Indication: Osteoarthritis
     Dosage: INJECTION IN C7-T1
     Route: 008

REACTIONS (3)
  - Cushing^s syndrome [Unknown]
  - Drug ineffective [Unknown]
  - Adrenal insufficiency [Unknown]
